FAERS Safety Report 8794099 (Version 1)
Quarter: 2012Q4

REPORT INFORMATION
  Report Type: 
  Country: PL (occurrence: PL)
  Receive Date: 20120918
  Receipt Date: 20120918
  Transmission Date: 20130627
  Serious: Yes (Hospitalization)
  Sender: FDA-Public Use
  Company Number: PL-TEVA-358607ISR

PATIENT
  Age: 52 Year
  Sex: Female

DRUGS (3)
  1. FENTANYL [Suspect]
     Indication: PAIN
     Dosage: 50 Microgram Daily;
     Route: 062
  2. VENLAFAXINE [Suspect]
     Indication: DEPRESSION
     Dosage: 150 Milligram Daily;
     Route: 065
  3. METOCLOPRAMIDE [Suspect]
     Dosage: 30 Milligram Daily;
     Route: 065

REACTIONS (1)
  - Serotonin syndrome [Unknown]
